FAERS Safety Report 11556488 (Version 2)
Quarter: 2015Q4

REPORT INFORMATION
  Report Type: Report from Study
  Country: DE (occurrence: DE)
  Receive Date: 20150925
  Receipt Date: 20151002
  Transmission Date: 20160304
  Serious: Yes (Life-Threatening)
  Sender: FDA-Public Use
  Company Number: DE-PFIZER INC-2015322607

PATIENT
  Age: 46 Year
  Sex: Male

DRUGS (6)
  1. BOSUTINIB [Suspect]
     Active Substance: BOSUTINIB
     Dosage: 300 MG, 1X/DAY
     Route: 048
     Dates: start: 20150506, end: 20150909
  2. TAZOBAC [Concomitant]
     Active Substance: PIPERACILLIN SODIUM\TAZOBACTAM SODIUM
     Indication: GASTROENTERITIS
     Dosage: 500 MG, 2X/DAY
     Route: 048
     Dates: start: 20150302
  3. PARACETAMOL [Concomitant]
     Active Substance: ACETAMINOPHEN
     Indication: GASTROENTERITIS
     Dosage: 500 MG, AS NEEDED
     Route: 048
     Dates: start: 20150303
  4. IMODIUM [Concomitant]
     Active Substance: LOPERAMIDE HYDROCHLORIDE
     Indication: GASTROENTERITIS
     Dosage: 2 MG, AS NEEDED
     Route: 048
     Dates: start: 20150227
  5. PARACODIN /00063001/ [Concomitant]
     Dosage: UNK
     Route: 048
     Dates: start: 20140101
  6. BOSUTINIB [Suspect]
     Active Substance: BOSUTINIB
     Indication: CHRONIC MYELOID LEUKAEMIA
     Dosage: 400 MG, 1X/DAY
     Route: 048
     Dates: start: 20150218, end: 20150505

REACTIONS (1)
  - Drug-induced liver injury [Recovering/Resolving]

NARRATIVE: CASE EVENT DATE: 20150909
